FAERS Safety Report 25042332 (Version 1)
Quarter: 2025Q1

REPORT INFORMATION
  Report Type: Report from Study
  Country: CA (occurrence: CA)
  Receive Date: 20250305
  Receipt Date: 20250305
  Transmission Date: 20250409
  Serious: Yes (Other)
  Sender: PFIZER
  Company Number: CA-BRISTOL-MYERS SQUIBB COMPANY-2024-199311

PATIENT
  Age: 80 Year
  Sex: Female

DRUGS (6)
  1. APIXABAN [Suspect]
     Active Substance: APIXABAN
  2. SPIRONOLACTONE [Suspect]
     Active Substance: SPIRONOLACTONE
  3. BOSENTAN [Suspect]
     Active Substance: BOSENTAN
     Indication: Pulmonary arterial hypertension
     Dosage: 125.0 MG, 1X/DAY
     Route: 048
  4. FLUTAMIDE [Suspect]
     Active Substance: FLUTAMIDE
  5. METFORMIN [Suspect]
     Active Substance: METFORMIN HYDROCHLORIDE
  6. TADALAFIL [Suspect]
     Active Substance: TADALAFIL

REACTIONS (3)
  - Cardiac failure [Unknown]
  - Nephropathy [Unknown]
  - Anaemia [Unknown]
